FAERS Safety Report 4893390-7 (Version None)
Quarter: 2006Q1

REPORT INFORMATION
  Report Type: 
  Country: None (occurrence: None)
  Receive Date: 20060124
  Receipt Date: 20060112
  Transmission Date: 20060701
  Serious: Yes (Hospitalization)
  Sender: FDA-Public Use
  Company Number: 2006008253

PATIENT
  Age: 36 Year
  Sex: Female
  Weight: 49.8957 kg

DRUGS (4)
  1. PREDNISONE [Suspect]
     Indication: EOSINOPHILIC CYSTITIS
     Dosage: 80 MG (1 IN 1 D)
  2. ANAESTHETICS                   (ANAESTHETICS) [Suspect]
     Indication: FOOT OPERATION
     Dates: start: 20051101
  3. IMURAN [Concomitant]
  4. VALIUM [Concomitant]

REACTIONS (8)
  - CONSTIPATION [None]
  - FOOT OPERATION [None]
  - GLAUCOMA [None]
  - IRRITABLE BOWEL SYNDROME [None]
  - POLLAKIURIA [None]
  - PROCEDURAL PAIN [None]
  - URINARY INCONTINENCE [None]
  - URINARY TRACT INFECTION [None]
